FAERS Safety Report 8819287 (Version 2)
Quarter: 2012Q4

REPORT INFORMATION
  Report Type: Report from Study
  Country: US (occurrence: US)
  Receive Date: 20121001
  Receipt Date: 20121206
  Transmission Date: 20130627
  Serious: Yes (Death, Life-Threatening, Hospitalization, Other)
  Sender: FDA-Public Use
  Company Number: US-CELGENEUS-163-21880-12093021

PATIENT
  Age: 66 None
  Sex: Female
  Weight: 55.43 kg

DRUGS (10)
  1. REVLIMID [Suspect]
     Indication: MDS
     Dosage: 50 Milligram
     Route: 048
     Dates: start: 20120716, end: 20120812
  2. REVLIMID [Suspect]
     Dosage: 50 Milligram
     Route: 048
     Dates: start: 20120827, end: 20120915
  3. VANCOMYCIN [Concomitant]
     Indication: ESCHERICHIA COLI BACTEREMIA
     Dosage: 1 Gram
     Route: 041
     Dates: start: 20120916
  4. ZOSYN [Concomitant]
     Indication: ESCHERICHIA COLI BACTEREMIA
     Dosage: 9 Gram
     Route: 041
     Dates: start: 20120916
  5. FENTANYL [Concomitant]
     Indication: DRUG USE FOR UNKNOWN INDICATION
     Route: 065
  6. DILANTIN [Concomitant]
     Indication: DRUG USE FOR UNKNOWN INDICATION
     Dosage: 200 Milligram
     Route: 041
  7. VERSED [Concomitant]
     Indication: DRUG USE FOR UNKNOWN INDICATION
     Route: 065
  8. LEVOPHED [Concomitant]
     Indication: DRUG USE FOR UNKNOWN INDICATION
     Route: 065
  9. PROTONIX [Concomitant]
     Indication: DRUG USE FOR UNKNOWN INDICATION
     Dosage: 40 Milligram
     Route: 041
  10. DOPAMINE [Concomitant]
     Indication: DRUG USE FOR UNKNOWN INDICATION
     Route: 065

REACTIONS (4)
  - Multi-organ failure [Fatal]
  - Subdural haematoma [Not Recovered/Not Resolved]
  - Urosepsis [Not Recovered/Not Resolved]
  - Thrombocytopenia [Not Recovered/Not Resolved]
